FAERS Safety Report 6806910-X (Version None)
Quarter: 2010Q2

REPORT INFORMATION
  Report Type: 
  Country: None (occurrence: None)
  Receive Date: 20100629
  Receipt Date: 20080611
  Transmission Date: 20101027
  Serious: No
  Sender: FDA-Public Use
  Company Number: US-PFIZER INC-2008046678

PATIENT
  Sex: Female
  Weight: 83.91 kg

DRUGS (6)
  1. ALDACTONE [Suspect]
     Indication: OEDEMA
     Route: 048
  2. LASIX [Concomitant]
  3. RELAFEN [Concomitant]
  4. CYTOTEC [Concomitant]
  5. TRICOR [Concomitant]
  6. CALCIUM CARBONATE [Concomitant]

REACTIONS (1)
  - DRUG INEFFECTIVE [None]
